FAERS Safety Report 15467600 (Version 4)
Quarter: 2019Q2

REPORT INFORMATION
  Report Type: Spontaneous
  Country: IL (occurrence: IL)
  Receive Date: 20181005
  Receipt Date: 20190530
  Transmission Date: 20190711
  Serious: Yes (Life-Threatening, Hospitalization, Other)
  Sender: FDA-Public Use
  Company Number: IL-SUN PHARMACEUTICAL INDUSTRIES LTD-2018R1-186265

PATIENT
  Age: 22 Year
  Sex: Female

DRUGS (1)
  1. BUPROPION. [Suspect]
     Active Substance: BUPROPION
     Indication: PRODUCT USED FOR UNKNOWN INDICATION
     Route: 065

REACTIONS (8)
  - Tachycardia [Unknown]
  - Weight decreased [Recovering/Resolving]
  - Drug abuse [Unknown]
  - Insomnia [Unknown]
  - Anxiety [Unknown]
  - Suicide attempt [Unknown]
  - Generalised tonic-clonic seizure [Unknown]
  - Headache [Unknown]
